FAERS Safety Report 24438448 (Version 2)
Quarter: 2024Q4

REPORT INFORMATION
  Report Type: Spontaneous
  Country: US (occurrence: US)
  Receive Date: 20241015
  Receipt Date: 20241126
  Transmission Date: 20250114
  Serious: No
  Sender: PFIZER
  Company Number: US-PFIZER INC-PV202400132875

PATIENT
  Age: 51 Year
  Sex: Male

DRUGS (1)
  1. TUKYSA [Suspect]
     Active Substance: TUCATINIB
     Indication: Colon cancer metastatic
     Dosage: UNK

REACTIONS (4)
  - Fatigue [Unknown]
  - Nausea [Unknown]
  - Back pain [Unknown]
  - Flank pain [Unknown]
